FAERS Safety Report 9416572 (Version 1)
Quarter: 2013Q3

REPORT INFORMATION
  Report Type: Spontaneous
  Country: DE (occurrence: DE)
  Receive Date: 20130724
  Receipt Date: 20130724
  Transmission Date: 20140515
  Serious: Yes (Congenital Anomaly)
  Sender: FDA-Public Use
  Company Number: DE-SANOFI-AVENTIS-2013SA073524

PATIENT
  Age: 1 Day
  Sex: Male
  Weight: 4.23 kg

DRUGS (4)
  1. CLEXANE [Suspect]
     Indication: THROMBOSIS PROPHYLAXIS
     Route: 064
     Dates: start: 2007, end: 2007
  2. CLEXANE [Suspect]
     Indication: THROMBOSIS PROPHYLAXIS
     Route: 064
     Dates: start: 2007, end: 2007
  3. ACETYLSALICYLIC ACID [Concomitant]
     Indication: THROMBOSIS PROPHYLAXIS
     Route: 064
     Dates: start: 2007, end: 2007
  4. FOLIC ACID [Concomitant]
     Indication: PROPHYLAXIS OF NEURAL TUBE DEFECT
     Route: 064
     Dates: start: 2006, end: 2007

REACTIONS (3)
  - Cleft lip [Unknown]
  - Foetal exposure timing unspecified [Unknown]
  - Large for dates baby [Unknown]
